FAERS Safety Report 7530636-0 (Version None)
Quarter: 2011Q2

REPORT INFORMATION
  Report Type: 
  Country: None (occurrence: None)
  Receive Date: 20110607
  Receipt Date: 20110601
  Transmission Date: 20111010
  Serious: Yes (Life-Threatening, Hospitalization, Other)
  Sender: FDA-Public Use
  Company Number: US-BAXTER-2011BH008924

PATIENT
  Age: 48 Year
  Sex: Male
  Weight: 85 kg

DRUGS (8)
  1. GAMMAGARD LIQUID [Suspect]
     Route: 042
     Dates: start: 20100801
  2. IMURAN [Concomitant]
     Indication: MYASTHENIA GRAVIS
     Route: 048
  3. DELTASONE [Concomitant]
     Indication: MYASTHENIA GRAVIS
     Route: 048
  4. GAMMAGARD LIQUID [Suspect]
     Route: 042
     Dates: start: 20101001
  5. GAMMAGARD LIQUID [Suspect]
     Indication: MYASTHENIA GRAVIS
     Route: 042
     Dates: start: 20110324, end: 20110324
  6. MESTINON [Concomitant]
     Indication: MYASTHENIA GRAVIS
     Route: 048
  7. ZOLOFT [Concomitant]
     Indication: DEPRESSION
     Route: 048
     Dates: start: 20100801
  8. ATIVAN [Concomitant]
     Indication: ANXIETY
     Route: 048
     Dates: start: 20110101

REACTIONS (5)
  - DYSPNOEA [None]
  - ESCHERICHIA INFECTION [None]
  - FEELING ABNORMAL [None]
  - BACTERIAL INFECTION [None]
  - PYREXIA [None]
